FAERS Safety Report 9510315 (Version 2)
Quarter: 2013Q3

REPORT INFORMATION
  Report Type: Spontaneous
  Country: US (occurrence: US)
  Receive Date: 20130909
  Receipt Date: 20130909
  Transmission Date: 20140515
  Serious: No
  Sender: FDA-Public Use
  Company Number: US-BRISTOL-MYERS SQUIBB COMPANY-17459512

PATIENT
  Age: 59 Year
  Sex: Male

DRUGS (2)
  1. ABILIFY [Suspect]
     Indication: DEPRESSION
     Dosage: LAST DOSE: 29DEC2012
     Route: 048
     Dates: start: 20110921
  2. WELLBUTRIN [Suspect]
     Dosage: LAST DOSE: 19DEC2012
     Dates: start: 20121105

REACTIONS (1)
  - Tardive dyskinesia [Unknown]
